FAERS Safety Report 17740798 (Version 1)
Quarter: 2020Q2

REPORT INFORMATION
  Report Type: Spontaneous
  Country: US (occurrence: US)
  Receive Date: 20200504
  Receipt Date: 20200504
  Transmission Date: 20200714
  Serious: Yes (Death)
  Sender: FDA-Public Use
  Company Number: None

PATIENT
  Age: 76 Year
  Sex: Female

DRUGS (2)
  1. VELTASSA 8.4 GRAM PACKETS [Concomitant]
     Dates: start: 20190617, end: 20200309
  2. VELTASSA [Suspect]
     Active Substance: PATIROMER

REACTIONS (1)
  - Death [None]

NARRATIVE: CASE EVENT DATE: 20200501
